FAERS Safety Report 5945763-9 (Version None)
Quarter: 2008Q4

REPORT INFORMATION
  Report Type: 
  Country: None (occurrence: None)
  Receive Date: 20081106
  Receipt Date: 20081030
  Transmission Date: 20090506
  Serious: Yes (Hospitalization, Other)
  Sender: FDA-Public Use
  Company Number: 2008SP018005

PATIENT
  Age: 54 Year
  Sex: Male

DRUGS (5)
  1. PEG-INTRON [Suspect]
     Indication: HEPATITIS C
     Dates: start: 20080610
  2. REBETOL [Suspect]
     Indication: HEPATITIS
     Dosage: PO
     Route: 048
     Dates: start: 20080610
  3. XANAX [Concomitant]
  4. KLONOPIN [Concomitant]
  5. LIPITOR [Concomitant]

REACTIONS (8)
  - ALOPECIA [None]
  - BLOOD CHOLESTEROL INCREASED [None]
  - BLOOD PRESSURE DECREASED [None]
  - CORONARY ARTERY OCCLUSION [None]
  - FATIGUE [None]
  - FEELING ABNORMAL [None]
  - MOVEMENT DISORDER [None]
  - MYOCARDIAL INFARCTION [None]
